FAERS Safety Report 4917734-2 (Version None)
Quarter: 2006Q1

REPORT INFORMATION
  Report Type: 
  Country: None (occurrence: None)
  Receive Date: 20060221
  Receipt Date: 20050707
  Transmission Date: 20060701
  Serious: Yes (Hospitalization)
  Sender: FDA-Public Use
  Company Number: SE-BOEHRINGER INGELHEIM PHARMACEUTICALS, INC.-2005-SW-00305SW

PATIENT
  Sex: Female

DRUGS (5)
  1. MOBIC [Suspect]
     Indication: SPONDYLITIS
     Route: 048
     Dates: start: 20050201, end: 20050213
  2. MOBIC [Suspect]
     Route: 048
     Dates: start: 20050214, end: 20050214
  3. PANOCOD [Suspect]
     Indication: SPONDYLITIS
     Route: 048
  4. PANOCOD [Suspect]
     Route: 048
     Dates: start: 20050214, end: 20050214
  5. ORUDIS RETARD [Suspect]
     Indication: SPONDYLITIS
     Route: 048

REACTIONS (8)
  - DEPRESSION [None]
  - HYPERSENSITIVITY [None]
  - LOSS OF CONSCIOUSNESS [None]
  - PRURITUS [None]
  - RESPIRATORY DEPRESSION [None]
  - RESPIRATORY RATE DECREASED [None]
  - RHINORRHOEA [None]
  - SOMNOLENCE [None]
